FAERS Safety Report 5067444-9 (Version None)
Quarter: 2006Q3

REPORT INFORMATION
  Report Type: 
  Country: None (occurrence: None)
  Receive Date: 20060726
  Receipt Date: 20060703
  Transmission Date: 20061208
  Serious: Yes (Other)
  Sender: FDA-Public Use
  Company Number: 2006-DE-03355GD

PATIENT
  Sex: Female

DRUGS (5)
  1. PREDNISONE TAB [Suspect]
     Indication: ALOPECIA AREATA
     Dosage: 40 MG PER DAY, TAPERED DOWN TO 20 MG PER DAY AFTER 10 DAYS
  2. PREDNISONE TAB [Suspect]
     Indication: ECZEMA
     Dosage: 40 MG PER DAY, TAPERED DOWN TO 20 MG PER DAY AFTER 10 DAYS
  3. PREDNISONE TAB [Suspect]
     Indication: PRURITUS
     Dosage: 40 MG PER DAY, TAPERED DOWN TO 20 MG PER DAY AFTER 10 DAYS
  4. TACROLIMUS (TACROLIMUS) [Concomitant]
  5. SIROLIMUS (SIROLIMUS) [Concomitant]

REACTIONS (1)
  - HYPERGLYCAEMIA [None]
